FAERS Safety Report 14481941 (Version 2)
Quarter: 2018Q1

REPORT INFORMATION
  Report Type: Spontaneous
  Country: US (occurrence: US)
  Receive Date: 20180202
  Receipt Date: 20180206
  Transmission Date: 20180509
  Serious: Yes (Other)
  Sender: FDA-Public Use
  Company Number: US-PFIZER INC-2018045345

PATIENT
  Age: 73 Year
  Sex: Female

DRUGS (3)
  1. ESTRING [Suspect]
     Active Substance: ESTRADIOL
     Indication: ATROPHIC VULVOVAGINITIS
     Dosage: 2 MG, EVERY 3 MONTHS
     Route: 067
  2. COUMADIN [Concomitant]
     Active Substance: WARFARIN SODIUM
     Dosage: UNK
  3. ESTRING [Suspect]
     Active Substance: ESTRADIOL
     Indication: HAEMORRHAGE

REACTIONS (3)
  - Vulvovaginal adhesion [Unknown]
  - Product use issue [Unknown]
  - Oestrogen deficiency [Unknown]

NARRATIVE: CASE EVENT DATE: 201801
